FAERS Safety Report 16362900 (Version 1)
Quarter: 2019Q2

REPORT INFORMATION
  Report Type: Spontaneous
  Country: CA (occurrence: CA)
  Receive Date: 20190528
  Receipt Date: 20190528
  Transmission Date: 20190711
  Serious: Yes (Other)
  Sender: FDA-Public Use
  Company Number: CA-TEVA-2019-CA-1055164

PATIENT
  Age: 71 Year
  Sex: Male
  Weight: 68.1 kg

DRUGS (1)
  1. INDAPAMIDE. [Suspect]
     Active Substance: INDAPAMIDE
     Indication: HYPERTENSION
     Dosage: 8 MILLIGRAM DAILY;
     Route: 048

REACTIONS (1)
  - Dysgeusia [Recovered/Resolved]
